FAERS Safety Report 5836827-9 (Version None)
Quarter: 2008Q3

REPORT INFORMATION
  Report Type: 
  Country: None (occurrence: None)
  Receive Date: 20080807
  Receipt Date: 20080801
  Transmission Date: 20090109
  Serious: Yes (Hospitalization)
  Sender: FDA-Public Use
  Company Number: A0739248A

PATIENT
  Age: 53 Year
  Sex: Female
  Weight: 76.5 kg

DRUGS (3)
  1. LAPATINIB [Suspect]
     Indication: BREAST CANCER
     Dosage: 1500MG PER DAY
     Route: 048
     Dates: start: 20071031
  2. ARIMIDEX [Concomitant]
     Indication: BREAST CANCER
     Dosage: 1MG PER DAY
     Route: 048
     Dates: start: 20070121
  3. OMEPRAZOLE [Concomitant]
     Dosage: 20MG PER DAY
     Route: 048
     Dates: start: 20071101

REACTIONS (6)
  - ATELECTASIS [None]
  - CHEST PAIN [None]
  - DYSPNOEA [None]
  - PNEUMONIA [None]
  - PYREXIA [None]
  - SINUSITIS [None]
